FAERS Safety Report 5322728-1 (Version None)
Quarter: 2007Q2

REPORT INFORMATION
  Report Type: 
  Country: None (occurrence: None)
  Receive Date: 20070511
  Receipt Date: 20070502
  Transmission Date: 20071010
  Serious: Yes (Hospitalization)
  Sender: FDA-Public Use
  Company Number: MY-SHR-MY-2007-015589

PATIENT
  Age: 33 Year
  Sex: Female

DRUGS (1)
  1. YASMIN 30 (21) (SH T 470)/ PETIBELLE [Suspect]
     Indication: CONTRACEPTION
     Dosage: 1 TAB(S), 1X/DAY
     Route: 048
     Dates: start: 20061007, end: 20070415

REACTIONS (2)
  - ARTHRALGIA [None]
  - SYSTEMIC LUPUS ERYTHEMATOSUS [None]
